FAERS Safety Report 4892984-2 (Version None)
Quarter: 2005Q4

REPORT INFORMATION
  Report Type: 
  Country: None (occurrence: None)
  Receive Date: 20051220
  Receipt Date: 20050905
  Transmission Date: 20060501
  Serious: Yes (Other)
  Sender: FDA-Public Use
  Company Number: 416773

PATIENT
  Age: 69 Year
  Sex: Female

DRUGS (2)
  1. BONIVA [Suspect]
     Dosage: ORAL
     Route: 048
  2. ANTIHYPERTENSIVE (ANTIHYPERTENSIVE NOS) [Concomitant]

REACTIONS (2)
  - FALL [None]
  - HYPOTENSION [None]
